FAERS Safety Report 4269315-4 (Version None)
Quarter: 2004Q1

REPORT INFORMATION
  Report Type: 
  Country: None (occurrence: None)
  Receive Date: 20040109
  Receipt Date: 20031230
  Transmission Date: 20041129
  Serious: Yes (Hospitalization)
  Sender: FDA-Public Use
  Company Number: NSADSS2003010053

PATIENT
  Age: 59 Year
  Sex: Female
  Weight: 80.2867 kg

DRUGS (19)
  1. REMICADE [Suspect]
     Indication: RHEUMATOID ARTHRITIS
     Dosage: 1 IN 1 DAY, INTRAVENOUS DRIP
     Route: 041
     Dates: start: 20010402
  2. ALBUTEROL [Concomitant]
  3. ATROVENT [Concomitant]
  4. TEMAZEPAM [Concomitant]
  5. PREDNISONE [Concomitant]
  6. DOCUSATE SODIUM (DOCUSATE SODIUM) [Concomitant]
  7. LIPITOR [Concomitant]
  8. METOPROLOL SUCCINATE [Concomitant]
  9. AMITRIPTYLINE HCL [Concomitant]
  10. LORAZEPAM [Concomitant]
  11. ENDOCET (OXYCOCET) [Concomitant]
  12. CELEBREX [Concomitant]
  13. FUROSEMIDE [Concomitant]
  14. INSULIN [Concomitant]
  15. ACTONEL [Concomitant]
  16. CALCIUM( CALCIUM) [Concomitant]
  17. POTASSIUM (POTASSIUM) [Concomitant]
  18. MULTIVITAMIN [Concomitant]
  19. DILTIAZEM [Concomitant]

REACTIONS (7)
  - BRONCHITIS [None]
  - CHRONIC OBSTRUCTIVE AIRWAYS DISEASE EXACERBATED [None]
  - PLEURITIC PAIN [None]
  - PNEUMONIA [None]
  - PSEUDOMONAS INFECTION [None]
  - SMOKER [None]
  - SPUTUM CULTURE POSITIVE [None]
